FAERS Safety Report 20903251 (Version 1)
Quarter: 2022Q2

REPORT INFORMATION
  Report Type: Spontaneous
  Country: JP (occurrence: JP)
  Receive Date: 20220601
  Receipt Date: 20220601
  Transmission Date: 20220721
  Serious: Yes (Life-Threatening, Hospitalization, Other)
  Sender: FDA-Public Use
  Company Number: JP-JAZZ-2022-JP-007097

PATIENT
  Age: 24 Year
  Sex: Male
  Weight: 57.5 kg

DRUGS (3)
  1. DEFITELIO [Suspect]
     Active Substance: DEFIBROTIDE SODIUM
     Indication: Venoocclusive liver disease
     Dosage: 25 MILLIGRAM/KILOGRAM, QD
     Route: 042
     Dates: start: 20220203, end: 20220203
  2. CARBAZOCHROME SODIUM SULFONATE [Concomitant]
     Active Substance: CARBAZOCHROME SODIUM SULFONATE
     Indication: Haemorrhage
     Dosage: UNK
     Dates: start: 20220203
  3. TRANSAMIN [Concomitant]
     Active Substance: TRANEXAMIC ACID
     Indication: Haemorrhage
     Dosage: UNK
     Dates: start: 20220203

REACTIONS (3)
  - Epistaxis [Recovered/Resolved]
  - Gastrointestinal haemorrhage [Recovered/Resolved]
  - Haemorrhage [Recovered/Resolved]

NARRATIVE: CASE EVENT DATE: 20220203
